FAERS Safety Report 9970424 (Version 4)
Quarter: 2015Q4

REPORT INFORMATION
  Report Type: Report from Study
  Country: US (occurrence: US)
  Receive Date: 20140306
  Receipt Date: 20151016
  Transmission Date: 20160305
  Serious: Yes (Hospitalization, Other)
  Sender: FDA-Public Use
  Company Number: US-ABBVIE-13P-163-1142696-00

PATIENT
  Age: 33 Year
  Sex: Female
  Weight: 60.38 kg

DRUGS (4)
  1. HUMIRA [Suspect]
     Active Substance: ADALIMUMAB
     Dosage: ONE TIME DOSE 160MG
     Route: 058
     Dates: start: 201309, end: 201309
  2. HUMIRA [Suspect]
     Active Substance: ADALIMUMAB
     Indication: COLITIS ULCERATIVE
     Route: 058
     Dates: start: 2011, end: 2012
  3. LOMOTIL [Concomitant]
     Active Substance: ATROPINE SULFATE\DIPHENOXYLATE HYDROCHLORIDE
     Indication: COLITIS ULCERATIVE
     Route: 065
  4. HUMIRA [Suspect]
     Active Substance: ADALIMUMAB
     Dosage: ONE TIME DOSE 160MG
     Route: 058

REACTIONS (22)
  - Hypophagia [Recovered/Resolved]
  - Wound [Recovering/Resolving]
  - Weight decreased [Not Recovered/Not Resolved]
  - Pouchitis [Recovered/Resolved]
  - Megacolon [Recovered/Resolved]
  - Sepsis [Recovered/Resolved]
  - Inflammation [Not Recovered/Not Resolved]
  - Fistula discharge [Recovered/Resolved]
  - Fistula inflammation [Not Recovered/Not Resolved]
  - Clostridium test positive [Unknown]
  - Pouchitis [Not Recovered/Not Resolved]
  - Large intestine perforation [Recovering/Resolving]
  - Fistula [Recovered/Resolved]
  - Inflammation of wound [Recovering/Resolving]
  - Pain in extremity [Not Recovered/Not Resolved]
  - Colitis ulcerative [Recovering/Resolving]
  - Arthralgia [Not Recovered/Not Resolved]
  - Impaired healing [Recovered/Resolved]
  - Pyoderma [Recovering/Resolving]
  - Arthritis [Not Recovered/Not Resolved]
  - Exposure during pregnancy [Unknown]
  - Wound infection bacterial [Recovering/Resolving]

NARRATIVE: CASE EVENT DATE: 2013
